FAERS Safety Report 7357812-4 (Version None)
Quarter: 2011Q1

REPORT INFORMATION
  Report Type: 
  Country: None (occurrence: None)
  Receive Date: 20110309
  Receipt Date: 20110223
  Transmission Date: 20110831
  Serious: Yes (Death)
  Sender: FDA-Public Use
  Company Number: FK201100332

PATIENT
  Age: 60 Year
  Sex: Female

DRUGS (6)
  1. RANITIDINE (RANITIDINE) (RADITIDINE) [Concomitant]
  2. DEXAMETHASONE (DEXAMETHASONE) (DEXAMETHASONE) [Concomitant]
  3. PACLITAXEL [Suspect]
     Indication: CERVIX CARCINOMA
     Dosage: (312 MG)
     Route: 042
     Dates: start: 20101123, end: 20101221
  4. CHLORPHENAMINE (CHLORPHENAMINE) (CHLORPHENAMINE) [Concomitant]
  5. CISPLATIN [Concomitant]
  6. ONADANSETRON (ONDANSETRON) (ONDANSETRON) [Concomitant]

REACTIONS (1)
  - DEATH [None]
